FAERS Safety Report 9224913 (Version 2)
Quarter: 2013Q2

REPORT INFORMATION
  Report Type: Spontaneous
  Country: IT (occurrence: None)
  Receive Date: 20130409
  Receipt Date: 20130410
  Transmission Date: 20140414
  Serious: Yes (Other)
  Sender: FDA-Public Use
  Company Number: AUR-APL-2013-02804

PATIENT
  Age: 85 Year
  Sex: Female

DRUGS (6)
  1. LEVOFLOXACIN [Suspect]
     Indication: BRONCHITIS
     Route: 048
     Dates: start: 20130111, end: 20130114
  2. MEDROL [Suspect]
     Indication: BRONCHITIS
     Route: 048
     Dates: start: 20130111, end: 20130114
  3. FLECAINIDE (FLECAINIDE) [Concomitant]
  4. PANTOPAN [Concomitant]
  5. MICARDIS (TELMISARTAN) [Concomitant]
  6. CARDIRENE [Concomitant]

REACTIONS (3)
  - Malaise [None]
  - Syncope [None]
  - Vomiting [None]
